FAERS Safety Report 5780884-5 (Version None)
Quarter: 2008Q2

REPORT INFORMATION
  Report Type: 
  Country: None (occurrence: None)
  Receive Date: 20080620
  Receipt Date: 20080611
  Transmission Date: 20081010
  Serious: Yes (Hospitalization)
  Sender: FDA-Public Use
  Company Number: GB-PFIZER INC-2008035167

PATIENT
  Sex: Female
  Weight: 88.5 kg

DRUGS (8)
  1. CELECOXIB [Suspect]
     Indication: OSTEOARTHRITIS
     Route: 048
     Dates: start: 20071120, end: 20071220
  2. CELECOXIB [Concomitant]
     Route: 048
     Dates: start: 20070523, end: 20071120
  3. SIMVASTATIN [Concomitant]
     Indication: HYPERLIPIDAEMIA
     Dosage: DAILY DOSE:20MG-FREQ:DAILY
     Route: 048
     Dates: start: 20061114, end: 20080115
  4. LEVOTHYROXINE SODIUM [Concomitant]
     Dosage: DAILY DOSE:50MG-FREQ:DAILY
     Route: 048
  5. BENDROFLUMETHIAZIDE [Concomitant]
     Indication: HYPERTENSION
     Dosage: DAILY DOSE:2.5MG-FREQ:DAILY
     Route: 048
  6. FUCIBET [Concomitant]
     Route: 048
  7. DICLOFENAC SODIUM [Concomitant]
     Indication: OSTEOARTHRITIS
     Dosage: DAILY DOSE:100MG-FREQ:DAILY
     Route: 048
     Dates: start: 20071220, end: 20080115
  8. OMEPRAZOLE [Concomitant]
     Dosage: DAILY DOSE:20MG-FREQ:DAILY
     Route: 048
     Dates: start: 20071220, end: 20080115

REACTIONS (8)
  - ABDOMINAL PAIN [None]
  - ABDOMINAL PAIN LOWER [None]
  - ABSCESS [None]
  - CRYPTOGENIC CIRRHOSIS [None]
  - DIARRHOEA [None]
  - HEPATIC CIRRHOSIS [None]
  - PAIN [None]
  - VOMITING [None]
